FAERS Safety Report 16285902 (Version 1)
Quarter: 2019Q2

REPORT INFORMATION
  Report Type: Spontaneous
  Country: US (occurrence: US)
  Receive Date: 20190503
  Receipt Date: 20190503
  Transmission Date: 20190711
  Serious: No
  Sender: FDA-Public Use
  Company Number: None

PATIENT
  Sex: Male

DRUGS (2)
  1. ADULT TUSSIN COUGH AND CHEST CONGESTION DM [Suspect]
     Active Substance: DEXTROMETHORPHAN HYDROBROMIDE\GUAIFENESIN
     Dosage: ?          QUANTITY:10 ML;?
     Route: 048
  2. ADULT TUSSIN COUGH AND CHEST CONGESTION DM [Suspect]
     Active Substance: DEXTROMETHORPHAN HYDROBROMIDE\GUAIFENESIN
     Dosage: ?          QUANTITY:10 ML;?
     Route: 048

REACTIONS (2)
  - Circumstance or information capable of leading to medication error [None]
  - Product packaging confusion [None]

NARRATIVE: CASE EVENT DATE: 20190503
